FAERS Safety Report 4286418-9 (Version None)
Quarter: 2004Q1

REPORT INFORMATION
  Report Type: 
  Country: None (occurrence: None)
  Receive Date: 20040202
  Receipt Date: 20040122
  Transmission Date: 20041129
  Serious: Yes (Death)
  Sender: FDA-Public Use
  Company Number: 2004004464

PATIENT
  Age: 5 Month
  Sex: Male
  Weight: 8.6183 kg

DRUGS (1)
  1. INFANT'S PEDIACARE DECONGESTANT AND COUGH DROPS (DEXTROMETHORPHAN, PSE [Suspect]
     Indication: INFLUENZA
     Dosage: 0.4ML ON THREE DIFFERENT NIGHTS, ORAL
     Route: 048
     Dates: start: 20031201

REACTIONS (1)
  - CRYING [None]
